FAERS Safety Report 12618774 (Version 1)
Quarter: 2016Q3

REPORT INFORMATION
  Report Type: Spontaneous
  Country: CA (occurrence: CA)
  Receive Date: 20160803
  Receipt Date: 20160803
  Transmission Date: 20161109
  Serious: Yes (Other)
  Sender: FDA-Public Use
  Company Number: CA-BEH-2016071850

PATIENT
  Age: 74 Year
  Sex: Male

DRUGS (2)
  1. ALBUREX [Suspect]
     Active Substance: ALBUMIN HUMAN
     Indication: PARACENTESIS
     Dosage: 100 ML, TID
     Route: 042
  2. ALBUREX [Suspect]
     Active Substance: ALBUMIN HUMAN
     Indication: HEPATIC CIRRHOSIS
     Dosage: 100 ML, BID
     Route: 042

REACTIONS (3)
  - Hypersensitivity [Not Recovered/Not Resolved]
  - Urticaria [Not Recovered/Not Resolved]
  - Infusion related reaction [Not Recovered/Not Resolved]
